FAERS Safety Report 7127023-6 (Version None)
Quarter: 2010Q4

REPORT INFORMATION
  Report Type: 
  Country: None (occurrence: None)
  Receive Date: 20101129
  Receipt Date: 20100111
  Transmission Date: 20110411
  Serious: No
  Sender: FDA-Public Use
  Company Number: US-PFIZER INC-2010005323

PATIENT
  Sex: Male
  Weight: 83.9 kg

DRUGS (1)
  1. VIAGRA [Suspect]
     Indication: ERECTILE DYSFUNCTION
     Dosage: UNK, AS NEEDED
     Route: 048
     Dates: start: 20090101

REACTIONS (3)
  - PENIS DISORDER [None]
  - SKIN IRRITATION [None]
  - SWELLING [None]
